FAERS Safety Report 19713190 (Version 1)
Quarter: 2021Q3

REPORT INFORMATION
  Report Type: Spontaneous
  Country: US (occurrence: US)
  Receive Date: 20210817
  Receipt Date: 20210817
  Transmission Date: 20211014
  Serious: No
  Sender: FDA-Public Use
  Company Number: None

PATIENT
  Age: 75 Year
  Sex: Male

DRUGS (1)
  1. PACERONE [Suspect]
     Active Substance: AMIODARONE HYDROCHLORIDE
     Route: 048
     Dates: start: 20210512, end: 20210714

REACTIONS (3)
  - Rhabdomyolysis [None]
  - Myalgia [None]
  - Hepatic enzyme increased [None]

NARRATIVE: CASE EVENT DATE: 20210609
